FAERS Safety Report 10186349 (Version 1)
Quarter: 2014Q2

REPORT INFORMATION
  Report Type: Spontaneous
  Country: US (occurrence: US)
  Receive Date: 20140521
  Receipt Date: 20140521
  Transmission Date: 20141212
  Serious: No
  Sender: FDA-Public Use
  Company Number: US-ASTRAZENECA-2014SE13198

PATIENT
  Age: 75 Year
  Sex: Female
  Weight: 59 kg

DRUGS (2)
  1. PULMICORT FLEXHALER [Suspect]
     Indication: DYSPNOEA
     Dosage: ONE INHALATION BID
     Route: 055
     Dates: start: 20140221
  2. UNSPECIFIED MEDICATIONS [Concomitant]

REACTIONS (3)
  - Fatigue [Unknown]
  - Wrong technique in drug usage process [Unknown]
  - Drug dose omission [Unknown]
